FAERS Safety Report 14602847 (Version 1)
Quarter: 2018Q1

REPORT INFORMATION
  Report Type: Spontaneous
  Country: US (occurrence: US)
  Receive Date: 20180304
  Receipt Date: 20180304
  Transmission Date: 20180509
  Serious: Yes (Hospitalization)
  Sender: FDA-Public Use
  Company Number: None

PATIENT
  Age: 76 Year
  Sex: Male

DRUGS (1)
  1. GEMCITABINE [Suspect]
     Active Substance: GEMCITABINE\GEMCITABINE HYDROCHLORIDE
     Indication: ADENOCARCINOMA PANCREAS
     Route: 042
     Dates: start: 20171012, end: 20171020

REACTIONS (6)
  - Nausea [None]
  - Cough [None]
  - Vomiting [None]
  - Asthenia [None]
  - Wheezing [None]
  - Pyrexia [None]

NARRATIVE: CASE EVENT DATE: 20171024
